FAERS Safety Report 10727181 (Version 3)
Quarter: 2015Q1

REPORT INFORMATION
  Report Type: Spontaneous
  Country: GB (occurrence: GB)
  Receive Date: 20150121
  Receipt Date: 20150331
  Transmission Date: 20150721
  Serious: Yes (Other)
  Sender: FDA-Public Use
  Company Number: GB-UCBSA-2015001249

PATIENT
  Sex: Female
  Weight: 61 kg

DRUGS (2)
  1. NEUPRO [Suspect]
     Active Substance: ROTIGOTINE
     Indication: PARKINSON^S DISEASE
     Dosage: STRENGTH: 8MG/24HR, 16 MG, ONCE DAILY (QD), 3 YEARS AGO
     Route: 062
  2. CO-BENELDOPA [Concomitant]
     Active Substance: BENSERAZIDE HYDROCHLORIDE\LEVODOPA
     Indication: PARKINSON^S DISEASE
     Dosage: 62.5 5/DAY
     Route: 048

REACTIONS (4)
  - Dysarthria [Recovered/Resolved]
  - Drug ineffective [Unknown]
  - Gait disturbance [Recovered/Resolved]
  - Product quality issue [Unknown]
